FAERS Safety Report 9153750 (Version 1)
Quarter: 2013Q1

REPORT INFORMATION
  Report Type: Spontaneous
  Country: US (occurrence: US)
  Receive Date: 20130311
  Receipt Date: 20130311
  Transmission Date: 20140127
  Serious: Yes (Life-Threatening, Hospitalization, Disabling)
  Sender: FDA-Public Use
  Company Number: US-VIROPHARMA INCORPORATED-20130227CINRY3984

PATIENT
  Age: 10 None
  Sex: Female

DRUGS (4)
  1. CINRYZE (C1 ESTERASE INHIBITOR (HUMAN)) [Suspect]
     Indication: HEREDITARY ANGIOEDEMA
     Dosage: 500-1000 UNITS
     Dates: start: 200904, end: 201002
  2. CINRYZE (C1 ESTERASE INHIBITOR (HUMAN)) [Suspect]
     Dosage: 500-1000 UNITS
     Dates: start: 201002, end: 201110
  3. CINRYZE (C1 ESTERASE INHIBITOR (HUMAN)) [Suspect]
     Dates: start: 201110
  4. FIRAZYR [Concomitant]
     Indication: HEREDITARY ANGIOEDEMA
     Dosage: UNKNOWN
     Route: 065
     Dates: start: 201202

REACTIONS (3)
  - Desmoplastic small round cell tumour [Unknown]
  - Off label use [Not Recovered/Not Resolved]
  - Off label use [Recovered/Resolved]
